FAERS Safety Report 5008304-9 (Version None)
Quarter: 2006Q2

REPORT INFORMATION
  Report Type: 
  Country: None (occurrence: None)
  Receive Date: 20060523
  Receipt Date: 20060518
  Transmission Date: 20061013
  Serious: Yes (Hospitalization, Disabling)
  Sender: FDA-Public Use
  Company Number: US-JNJFOC-20041000343

PATIENT
  Sex: Male
  Weight: 90.72 kg

DRUGS (12)
  1. LEVAQUIN [Suspect]
     Indication: PANCREATITIS
     Route: 042
     Dates: start: 20040911, end: 20040914
  2. LEVAQUIN [Suspect]
     Route: 048
     Dates: start: 20040914
  3. OMPRAZOLE [Concomitant]
  4. ROXICET [Concomitant]
  5. ROXICET [Concomitant]
  6. MYLANTA [Concomitant]
  7. IMIPENUM [Concomitant]
  8. PERCOCET [Concomitant]
  9. PERCOCET [Concomitant]
  10. MALLOX [Concomitant]
  11. MALLOX [Concomitant]
  12. DILAUDID [Concomitant]

REACTIONS (8)
  - ARTHRALGIA [None]
  - CELLULITIS [None]
  - NEUROPATHY PERIPHERAL [None]
  - ONYCHOCLASIS [None]
  - RASH ERYTHEMATOUS [None]
  - RENAL FAILURE [None]
  - STASIS DERMATITIS [None]
  - TOXIC EPIDERMAL NECROLYSIS [None]
